FAERS Safety Report 17009237 (Version 2)
Quarter: 2020Q1

REPORT INFORMATION
  Report Type: Report from Study
  Country: IT (occurrence: IT)
  Receive Date: 20191108
  Receipt Date: 20200327
  Transmission Date: 20200409
  Serious: Yes (Hospitalization)
  Sender: FDA-Public Use
  Company Number: IT-GILEAD-2019-0436125

PATIENT
  Age: 74 Year
  Sex: Female

DRUGS (10)
  1. ADALAT CRONO [Concomitant]
     Active Substance: NIFEDIPINE
     Dosage: 60 MG
  2. OMEPRAZEN [OMEPRAZOLE] [Concomitant]
     Active Substance: OMEPRAZOLE
     Dosage: 20 MG
     Route: 065
  3. DUROGESIC SMAT [Concomitant]
     Active Substance: FENTANYL
     Dosage: 50 UNK
  4. TRIATEC COMP [Concomitant]
     Active Substance: HYDROCHLOROTHIAZIDE\RAMIPRIL
     Dosage: 5 MG
  5. COUMADIN [Concomitant]
     Active Substance: WARFARIN SODIUM
     Dosage: 5 MG
  6. PARACETAMOL [Concomitant]
     Active Substance: ACETAMINOPHEN
  7. LAROXYL [Concomitant]
     Active Substance: AMITRIPTYLINE HYDROCHLORIDE
  8. MULTAQ [Concomitant]
     Active Substance: DRONEDARONE
     Dosage: 400 MG
     Route: 065
  9. TENOFOVIR DISOPROXIL FUMARATE. [Suspect]
     Active Substance: TENOFOVIR DISOPROXIL FUMARATE
     Indication: HEPATITIS B DNA INCREASED
     Dosage: 245 MG, QD
     Route: 048
     Dates: start: 20190917
  10. LYRICA [Concomitant]
     Active Substance: PREGABALIN

REACTIONS (1)
  - Hypertransaminasaemia [Recovering/Resolving]

NARRATIVE: CASE EVENT DATE: 20191007
